APPROVED DRUG PRODUCT: BORTEZOMIB
Active Ingredient: BORTEZOMIB
Strength: 1MG/VIAL
Dosage Form/Route: POWDER;INTRAVENOUS, SUBCUTANEOUS
Application: N209191 | Product #001 | TE Code: AP
Applicant: HOSPIRA INC
Approved: May 2, 2022 | RLD: Yes | RS: Yes | Type: RX